FAERS Safety Report 4773996-6 (Version None)
Quarter: 2005Q3

REPORT INFORMATION
  Report Type: 
  Country: None (occurrence: None)
  Receive Date: 20050920
  Receipt Date: 20050131
  Transmission Date: 20060218
  Serious: No
  Sender: FDA-Public Use
  Company Number: 2005UW01764

PATIENT
  Sex: Male

DRUGS (3)
  1. SEROQUEL [Suspect]
     Route: 048
  2. SYMBYAX [Concomitant]
  3. PROZAC [Concomitant]

REACTIONS (1)
  - ERYTHEMA [None]
